FAERS Safety Report 16094380 (Version 1)
Quarter: 2019Q1

REPORT INFORMATION
  Report Type: Spontaneous
  Country: US (occurrence: US)
  Receive Date: 20190320
  Receipt Date: 20190320
  Transmission Date: 20190418
  Serious: No
  Sender: FDA-Public Use
  Company Number: US-PFIZER INC-2019122059

PATIENT
  Age: 87 Year
  Sex: Female
  Weight: 56.6 kg

DRUGS (1)
  1. DILANTIN [Suspect]
     Active Substance: PHENYTOIN
     Dosage: UNK
     Dates: start: 1952

REACTIONS (3)
  - Bone disorder [Unknown]
  - Pain [Unknown]
  - Scoliosis [Unknown]
